FAERS Safety Report 21807034 (Version 2)
Quarter: 2023Q1

REPORT INFORMATION
  Report Type: Report from Study
  Country: US (occurrence: US)
  Receive Date: 20230102
  Receipt Date: 20230308
  Transmission Date: 20230418
  Serious: Yes (Other)
  Sender: FDA-Public Use
  Company Number: US-ABBVIE-4223955

PATIENT
  Sex: Female

DRUGS (2)
  1. HUMIRA [Suspect]
     Active Substance: ADALIMUMAB
     Indication: Psoriatic arthropathy
     Dosage: FORM STRENGTH: 40 MG
     Route: 058
  2. LYRICA [Suspect]
     Active Substance: PREGABALIN
     Indication: Product used for unknown indication
     Route: 065

REACTIONS (8)
  - Leg amputation [Unknown]
  - Fall [Recovering/Resolving]
  - Eye disorder [Unknown]
  - Contusion [Unknown]
  - Head injury [Unknown]
  - Blood potassium decreased [Unknown]
  - Pain [Unknown]
  - Wheelchair user [Recovering/Resolving]
